FAERS Safety Report 6521836-7 (Version None)
Quarter: 2009Q4

REPORT INFORMATION
  Report Type: 
  Country: None (occurrence: None)
  Receive Date: 20091228
  Receipt Date: 20091228
  Transmission Date: 20100525
  Serious: Yes (Life-Threatening)
  Sender: FDA-Public Use
  Company Number: None

PATIENT
  Age: 70 Year
  Sex: Female
  Weight: 61.2356 kg

DRUGS (1)
  1. ZICAM NOSE SWABS (REMEDY FOR COLD) [Suspect]
     Indication: NASOPHARYNGITIS
     Dosage: (ABOUT 3-4 DAYS AT START OF A COLD.
     Dates: start: 20040101

REACTIONS (4)
  - ANOSMIA [None]
  - EMOTIONAL DISORDER [None]
  - FEAR [None]
  - PRODUCT QUALITY ISSUE [None]
